FAERS Safety Report 5329073-9 (Version None)
Quarter: 2007Q2

REPORT INFORMATION
  Report Type: 
  Country: None (occurrence: None)
  Receive Date: 20070518
  Receipt Date: 20070507
  Transmission Date: 20071010
  Serious: Yes (Other)
  Sender: FDA-Public Use
  Company Number: US-PFIZER INC-2006117208

PATIENT
  Sex: Female

DRUGS (9)
  1. NEURONTIN [Suspect]
     Indication: BACK PAIN
  2. NEURONTIN [Suspect]
     Indication: ARTHRALGIA
  3. LIPITOR [Suspect]
  4. HYDROCHLOROTHIAZIDE [Suspect]
  5. RANITIDINE [Suspect]
  6. CARISOPRODOL [Concomitant]
  7. CELEBREX [Concomitant]
  8. HYDROCODONE BITARTRATE [Concomitant]
  9. AMITRIPTYLINE HCL [Concomitant]

REACTIONS (4)
  - DRUG INEFFECTIVE [None]
  - INTENTIONAL OVERDOSE [None]
  - SELF INJURIOUS BEHAVIOUR [None]
  - SUICIDE ATTEMPT [None]
